FAERS Safety Report 20069426 (Version 1)
Quarter: 2021Q4

REPORT INFORMATION
  Report Type: Spontaneous
  Country: US (occurrence: None)
  Receive Date: 20211112
  Receipt Date: 20211112
  Transmission Date: 20220303
  Serious: Yes (Life-Threatening, Hospitalization, Other)
  Sender: FDA-Public Use
  Company Number: None

PATIENT
  Age: 56 Year
  Sex: Male
  Weight: 48.35 kg

DRUGS (1)
  1. DIPHENHYDRAMINE [Suspect]
     Active Substance: DIPHENHYDRAMINE
     Indication: Antiallergic therapy
     Dates: start: 20210616, end: 20210616

REACTIONS (4)
  - Respiratory failure [None]
  - Haemodialysis [None]
  - Respiratory arrest [None]
  - Respiratory depression [None]

NARRATIVE: CASE EVENT DATE: 20210616
